FAERS Safety Report 7777137-2 (Version None)
Quarter: 2011Q3

REPORT INFORMATION
  Report Type: 
  Country: None (occurrence: None)
  Receive Date: 20110926
  Receipt Date: 20110915
  Transmission Date: 20111222
  Serious: Yes (Other)
  Sender: FDA-Public Use
  Company Number: JP-JNJFOC-20110907742

PATIENT
  Age: 32 Year
  Sex: Female

DRUGS (4)
  1. FENTANYL CITRATE [Suspect]
     Route: 062
  2. ETANERCEPT [Suspect]
     Indication: PAIN
     Route: 065
  3. FENTANYL CITRATE [Suspect]
     Indication: PAIN
     Route: 062
  4. FENTANYL CITRATE [Suspect]
     Route: 062

REACTIONS (4)
  - OVERDOSE [None]
  - INSOMNIA [None]
  - VISUAL IMPAIRMENT [None]
  - SOMNOLENCE [None]
